FAERS Safety Report 4562580-5 (Version None)
Quarter: 2005Q1

REPORT INFORMATION
  Report Type: 
  Country: None (occurrence: None)
  Receive Date: 20050127
  Receipt Date: 20050117
  Transmission Date: 20050727
  Serious: Yes (Hospitalization)
  Sender: FDA-Public Use
  Company Number: CH-ROCHE-392759

PATIENT
  Age: 62 Year
  Sex: Female

DRUGS (4)
  1. LARIAM [Suspect]
     Indication: PROPHYLACTIC CHEMOTHERAPY
     Route: 048
     Dates: start: 20041115, end: 20041215
  2. PRAVASTATIN SODIUM [Concomitant]
     Dosage: DOSE DURATION WAS REPORTED AS LONG TERM.
     Route: 048
  3. ACTIVELLE [Concomitant]
     Dosage: DOSE DURATION WAS REPORTED AS LONG TERM.
     Route: 048
  4. ALCACYL [Concomitant]
     Route: 048

REACTIONS (7)
  - ABDOMINAL PAIN UPPER [None]
  - ANOREXIA [None]
  - GAMMA-GLUTAMYLTRANSFERASE INCREASED [None]
  - HEPATOCELLULAR DAMAGE [None]
  - JAUNDICE [None]
  - NAUSEA [None]
  - PYREXIA [None]
